FAERS Safety Report 5488173-3 (Version None)
Quarter: 2007Q3

REPORT INFORMATION
  Report Type: 
  Country: None (occurrence: None)
  Receive Date: 20070927
  Receipt Date: 20070207
  Transmission Date: 20080115
  Serious: Yes (Other)
  Sender: FDA-Public Use
  Company Number: FABR-11877

PATIENT
  Age: 41 Year
  Sex: Male
  Weight: 72 kg

DRUGS (4)
  1. FABRAZYME [Suspect]
     Indication: FABRY'S DISEASE
     Dosage: 70 MG Q2WKS IV
     Route: 042
     Dates: start: 20051206, end: 20061101
  2. FABRAZYME [Suspect]
     Indication: FABRY'S DISEASE
     Dosage: 35 MG ONCE IV
     Route: 042
     Dates: start: 20070207, end: 20070207
  3. ACETAMINOPHEN [Concomitant]
  4. HYDROXYZINE [Concomitant]

REACTIONS (3)
  - BLOOD PRESSURE DECREASED [None]
  - GASTROINTESTINAL DISORDER [None]
  - URINARY TRACT DISORDER [None]
